FAERS Safety Report 7705766-0 (Version None)
Quarter: 2011Q3

REPORT INFORMATION
  Report Type: 
  Country: None (occurrence: None)
  Receive Date: 20110824
  Receipt Date: 20110824
  Transmission Date: 20111222
  Serious: Yes (Death, Other)
  Sender: FDA-Public Use
  Company Number: None

PATIENT
  Age: 55 Year
  Sex: Male
  Weight: 74.842 kg

DRUGS (2)
  1. SAPHRIS [Concomitant]
     Dosage: 10 MG
     Route: 060
     Dates: start: 20100710, end: 20100729
  2. SAPHRIS [Suspect]
     Indication: BIPOLAR DISORDER
     Dosage: 5 MG
     Route: 060
     Dates: start: 20100710, end: 20100729

REACTIONS (3)
  - SELF INJURIOUS BEHAVIOUR [None]
  - HALLUCINATION [None]
  - GUN SHOT WOUND [None]
